FAERS Safety Report 5103390-X (Version None)
Quarter: 2006Q3

REPORT INFORMATION
  Report Type: 
  Country: None (occurrence: None)
  Receive Date: 20060908
  Receipt Date: 20060828
  Transmission Date: 20061208
  Serious: Yes (Hospitalization)
  Sender: FDA-Public Use
  Company Number: 2006106889

PATIENT
  Age: 61 Year
  Sex: Male
  Weight: 85.2762 kg

DRUGS (1)
  1. CELEBREX [Suspect]
     Dosage: 400 MG (200 MG, 2 IN 1 D)

REACTIONS (1)
  - CARDIAC DISORDER [None]
